FAERS Safety Report 11589930 (Version 3)
Quarter: 2015Q4

REPORT INFORMATION
  Report Type: Spontaneous
  Country: US (occurrence: None)
  Receive Date: 20151002
  Receipt Date: 20151105
  Transmission Date: 20160304
  Serious: Yes (Other)
  Sender: FDA-Public Use
  Company Number: US-MDT-ADR-2015-01890

PATIENT
  Age: 55 Year
  Sex: Female

DRUGS (2)
  1. COMPOUNDED BACLOFEN INTRATHECAL - 2,400 MCG/ML [Suspect]
     Active Substance: BACLOFEN
     Indication: MUSCLE SPASTICITY
     Dosage: 900 MCG/DAY
  2. MORPHINE INTRATHECAL - 16.0 MG/ML [Suspect]
     Active Substance: MORPHINE
     Dosage: 6 MG/DAY

REACTIONS (4)
  - Nausea [None]
  - Device malfunction [None]
  - Device issue [None]
  - Pain [None]
